FAERS Safety Report 5296467-X (Version None)
Quarter: 2007Q2

REPORT INFORMATION
  Report Type: 
  Country: None (occurrence: None)
  Receive Date: 20070413
  Receipt Date: 20070404
  Transmission Date: 20071010
  Serious: Yes (Other)
  Sender: FDA-Public Use
  Company Number: BR-ABBOTT-07P-020-0364318-00

PATIENT
  Age: 65 Year
  Sex: Female

DRUGS (8)
  1. DEPAKENE [Suspect]
     Indication: CONVULSION
     Route: 048
  2. DEPAKENE [Suspect]
     Route: 048
  3. PHENOBARBITAL TAB [Concomitant]
     Indication: CONVULSION
     Route: 048
  4. PHENOBARBITAL TAB [Concomitant]
     Route: 048
  5. LEVOTHYROXINE SODIUM [Concomitant]
     Indication: HYPOTHYROIDISM
     Route: 048
  6. PANTOPRAZOLE [Concomitant]
     Indication: DRUG USE FOR UNKNOWN INDICATION
     Route: 048
  7. ENALAPRIL MALEATE [Concomitant]
     Indication: DRUG USE FOR UNKNOWN INDICATION
     Route: 048
  8. FOLIC ACID [Concomitant]
     Indication: DRUG USE FOR UNKNOWN INDICATION
     Route: 048

REACTIONS (2)
  - AMNESIA [None]
  - DISTURBANCE IN ATTENTION [None]
